FAERS Safety Report 8537306-0 (Version None)
Quarter: 2012Q3

REPORT INFORMATION
  Report Type: 
  Country: None (occurrence: None)
  Receive Date: 20120725
  Receipt Date: 20120720
  Transmission Date: 20120928
  Serious: Yes (Death, Other)
  Sender: FDA-Public Use
  Company Number: US-PFIZER INC-2012119485

PATIENT
  Sex: Female

DRUGS (8)
  1. NORVASC [Concomitant]
     Dosage: UNK
  2. SUTENT [Suspect]
     Indication: METASTATIC RENAL CELL CARCINOMA
     Dosage: 50 MG, 1X/DAY
     Route: 048
     Dates: start: 20111001
  3. ORPHENADRINE [Concomitant]
     Dosage: UNK
  4. SUTENT [Suspect]
     Dosage: UNK
     Route: 048
  5. MORPHINE SULFATE [Concomitant]
     Dosage: UNK
  6. RENVELA [Concomitant]
     Dosage: UNK
  7. FOLIC ACID [Concomitant]
     Dosage: UNK
  8. PERCOCET [Concomitant]
     Dosage: UNK

REACTIONS (2)
  - VAGINAL HAEMORRHAGE [None]
  - DEATH [None]
